FAERS Safety Report 9167542 (Version 1)
Quarter: 2013Q1

REPORT INFORMATION
  Report Type: Spontaneous
  Country: CN (occurrence: None)
  Receive Date: 20130304
  Receipt Date: 20130304
  Transmission Date: 20140127
  Serious: Yes (Other)
  Sender: FDA-Public Use
  Company Number: VAL_01444_2013

PATIENT
  Sex: Male
  Weight: 80 kg

DRUGS (2)
  1. BENAZEPRIL [Suspect]
     Indication: HYPERTENSION
     Route: 048
     Dates: start: 20090326, end: 20090328
  2. FELODIPINE [Suspect]
     Indication: HYPERTENSION
     Dates: start: 20090326, end: 20090328

REACTIONS (1)
  - Anaphylactic reaction [None]
